FAERS Safety Report 12889115 (Version 1)
Quarter: 2016Q4

REPORT INFORMATION
  Report Type: Spontaneous
  Country: KR (occurrence: KR)
  Receive Date: 20161027
  Receipt Date: 20161027
  Transmission Date: 20170207
  Serious: Yes (Hospitalization, Other)
  Sender: FDA-Public Use
  Company Number: KR-009507513-1610KOR013324

PATIENT
  Age: 54 Year
  Sex: Male
  Weight: 65.6 kg

DRUGS (21)
  1. EMEND (FOSAPREPITANT DIMEGLUMINE) [Suspect]
     Active Substance: FOSAPREPITANT DIMEGLUMINE
     Dosage: 150 MG, ONCE
     Route: 042
     Dates: start: 20160812, end: 20160812
  2. DEXAMETHASONE. [Suspect]
     Active Substance: DEXAMETHASONE
     Indication: PROPHYLAXIS OF NAUSEA AND VOMITING
     Dosage: 40 MG, ONCE
     Route: 042
     Dates: start: 20160812, end: 20160812
  3. PENIRAMIN [Concomitant]
     Indication: PROPHYLAXIS
     Dosage: 4 MG, QD
     Route: 042
     Dates: start: 20160711
  4. MEGESTROL ACETATE. [Concomitant]
     Active Substance: MEGESTROL ACETATE
     Indication: PROPHYLAXIS
     Dosage: 10 UNK, BID
     Route: 048
     Dates: start: 20160708, end: 20160817
  5. URSA TABLETS [Concomitant]
     Indication: PROPHYLAXIS
     Dosage: 100 MG, TID
     Route: 048
     Dates: start: 20160713, end: 20160824
  6. CISPLATIN. [Concomitant]
     Active Substance: CISPLATIN
     Indication: POST TRANSPLANT LYMPHOPROLIFERATIVE DISORDER
     Dosage: 30.5 MG, ONCE, CYCLE: 2
     Route: 042
     Dates: start: 20160812, end: 20160812
  7. LASIX [Concomitant]
     Active Substance: FUROSEMIDE
     Indication: PROPHYLAXIS
     Dosage: 20 MG, BID
     Route: 048
     Dates: start: 20160711, end: 20160824
  8. OCUMETHOLONE [Concomitant]
     Indication: INFECTION PROPHYLAXIS
     Dosage: 2.5 ML, BID
     Route: 047
     Dates: start: 20160812, end: 20160812
  9. SOLONDO [Suspect]
     Active Substance: PREDNISOLONE
     Indication: PROPHYLAXIS OF NAUSEA AND VOMITING
     Dosage: 100 MG, ONCE
     Route: 048
     Dates: start: 20160610, end: 20160610
  10. CISPLATIN. [Concomitant]
     Active Substance: CISPLATIN
     Indication: POST TRANSPLANT LYMPHOPROLIFERATIVE DISORDER
     Dosage: 100 MG, ONCE, CYCLE: 2
     Route: 042
     Dates: start: 20160812, end: 20160812
  11. NASEA [Concomitant]
     Active Substance: RAMOSETRON HYDROCHLORIDE
     Indication: PROPHYLAXIS OF NAUSEA AND VOMITING
     Dosage: 0.3 MG, ONCE
     Route: 042
     Dates: start: 20160812, end: 20160812
  12. ZYLORIC [Concomitant]
     Active Substance: ALLOPURINOL
     Indication: PAIN PROPHYLAXIS
     Dosage: 100 MG, TID
     Route: 048
     Dates: start: 20160610, end: 20160815
  13. DIAZEPAM. [Concomitant]
     Active Substance: DIAZEPAM
     Indication: PROPHYLAXIS
     Dosage: 5 MG, QD
     Route: 048
     Dates: start: 20160808, end: 20160824
  14. EMEND (FOSAPREPITANT DIMEGLUMINE) [Suspect]
     Active Substance: FOSAPREPITANT DIMEGLUMINE
     Indication: PROPHYLAXIS OF NAUSEA AND VOMITING
     Dosage: 150 MG, ONCE
     Route: 042
     Dates: start: 20160610, end: 20160610
  15. BENZTROPINE MESYLATE. [Concomitant]
     Active Substance: BENZTROPINE MESYLATE
     Indication: PROPHYLAXIS
     Dosage: 0.5 MG, QD
     Route: 048
     Dates: start: 20160808, end: 20160824
  16. DEXILANT [Concomitant]
     Active Substance: DEXLANSOPRAZOLE
     Indication: PROPHYLAXIS
     Dosage: 30 MG, QD
     Route: 048
     Dates: start: 20160610, end: 20160824
  17. GASMOTIN [Concomitant]
     Active Substance: MOSAPRIDE CITRATE
     Indication: GASTRITIS PROPHYLAXIS
     Dosage: 5 MG, TID
     Route: 048
     Dates: start: 20160610, end: 20160815
  18. ALDACTONE [Concomitant]
     Active Substance: SPIRONOLACTONE
     Indication: PROPHYLAXIS
     Dosage: 50 MG, BID
     Route: 048
     Dates: start: 20160711, end: 20160824
  19. CRAVIT [Concomitant]
     Active Substance: LEVOFLOXACIN
     Indication: INFECTION PROPHYLAXIS
     Dosage: 500 MG, QD
     Route: 048
     Dates: start: 20160708, end: 20160824
  20. LEUNASE [Concomitant]
     Active Substance: ASPARAGINASE
     Indication: POST TRANSPLANT LYMPHOPROLIFERATIVE DISORDER
     Dosage: 10440 KIU, ONCE, CYCLE: 2
     Route: 042
     Dates: start: 20160812, end: 20160812
  21. SILYMAN [Concomitant]
     Indication: PROPHYLAXIS
     Dosage: 140 MG, BID
     Route: 048
     Dates: start: 20160713, end: 20160824

REACTIONS (1)
  - Gastric ulcer haemorrhage [Recovered/Resolved]

NARRATIVE: CASE EVENT DATE: 20160821
